FAERS Safety Report 19933872 (Version 6)
Quarter: 2022Q3

REPORT INFORMATION
  Report Type: Spontaneous
  Country: US (occurrence: US)
  Receive Date: 20211008
  Receipt Date: 20220808
  Transmission Date: 20221027
  Serious: Yes (Hospitalization, Other)
  Sender: FDA-Public Use
  Company Number: US-PFIZER INC-202101282330

PATIENT
  Age: 72 Year
  Sex: Female

DRUGS (2)
  1. XELJANZ XR [Suspect]
     Active Substance: TOFACITINIB CITRATE
     Dosage: 11 MG, 1X/DAY
     Route: 048
  2. METHOTREXATE [Concomitant]
     Active Substance: METHOTREXATE
     Dosage: UNK

REACTIONS (8)
  - Rheumatoid arthritis [Unknown]
  - COVID-19 [Unknown]
  - Product dose omission issue [Unknown]
  - Nervousness [Unknown]
  - Reading disorder [Unknown]
  - Gait disturbance [Unknown]
  - Asthenia [Unknown]
  - Illness [Unknown]
